FAERS Safety Report 10564790 (Version 1)
Quarter: 2014Q4

REPORT INFORMATION
  Report Type: Spontaneous
  Country: GB (occurrence: GB)
  Receive Date: 20141105
  Receipt Date: 20141105
  Transmission Date: 20150529
  Serious: Yes (Disabling, Other)
  Sender: FDA-Public Use
  Company Number: GB-ACCORD-026760

PATIENT
  Sex: Male

DRUGS (1)
  1. DONEPEZIL/DONEPEZIL HYDROCHLORIDE [Suspect]
     Active Substance: DONEPEZIL HYDROCHLORIDE
     Indication: DEMENTIA ALZHEIMER^S TYPE

REACTIONS (4)
  - Insomnia [Recovered/Resolved]
  - Mobility decreased [Recovering/Resolving]
  - Fall [None]
  - Panic attack [Recovering/Resolving]
